FAERS Safety Report 8952761 (Version 1)
Quarter: 2012Q4

REPORT INFORMATION
  Report Type: 
  Country: US (occurrence: US)
  Receive Date: 20121205
  Receipt Date: 20121205
  Transmission Date: 20130627
  Serious: Yes (Death, Hospitalization)
  Sender: FDA-Public Use
  Company Number: US-ASTELLAS-2012US011739

PATIENT
  Sex: Male
  Weight: 71 kg

DRUGS (1)
  1. TARCEVA [Suspect]
     Indication: PRODUCT USED FOR UNKNOWN INDICATION
     Dosage: UNK
     Route: 048
     Dates: start: 20110511, end: 20110618

REACTIONS (2)
  - Lung carcinoma cell type unspecified stage IV [Fatal]
  - Malignant pleural effusion [Unknown]
